FAERS Safety Report 4341657-3 (Version None)
Quarter: 2004Q2

REPORT INFORMATION
  Report Type: 
  Country: None (occurrence: None)
  Receive Date: 20040415
  Receipt Date: 20040330
  Transmission Date: 20050107
  Serious: Yes (Hospitalization)
  Sender: FDA-Public Use
  Company Number: FR_040303822

PATIENT
  Age: 81 Year
  Sex: Female

DRUGS (2)
  1. PROZAC [Suspect]
     Dosage: 20 MG/1 DAY
  2. ALDACTAZINE [Concomitant]

REACTIONS (4)
  - GENERAL PHYSICAL CONDITION ABNORMAL [None]
  - HEADACHE [None]
  - HYPOKALAEMIA [None]
  - HYPONATRAEMIA [None]
